FAERS Safety Report 7940053-7 (Version None)
Quarter: 2011Q4

REPORT INFORMATION
  Report Type: 
  Country: None (occurrence: None)
  Receive Date: 20111125
  Receipt Date: 20111122
  Transmission Date: 20120403
  Serious: Yes (Death, Hospitalization)
  Sender: FDA-Public Use
  Company Number: US-SANOFI-AVENTIS-2011SA077046

PATIENT
  Age: 56 Year
  Sex: Female

DRUGS (4)
  1. DOCETAXEL [Suspect]
     Indication: BREAST CANCER
     Route: 042
     Dates: start: 20020410
  2. TRASTUZUMAB [Suspect]
     Indication: BREAST CANCER
     Route: 042
     Dates: start: 20020410
  3. DOXORUBICIN HCL [Suspect]
     Indication: BREAST CANCER
     Route: 042
     Dates: start: 20020410
  4. PYRIDOXINE HCL [Suspect]
     Indication: BREAST CANCER
     Route: 065
     Dates: start: 20020410

REACTIONS (9)
  - HYPOALBUMINAEMIA [None]
  - OSTEONECROSIS [None]
  - ALANINE AMINOTRANSFERASE INCREASED [None]
  - ASPARTATE AMINOTRANSFERASE INCREASED [None]
  - HYPERKALAEMIA [None]
  - HYPERGLYCAEMIA [None]
  - EMBOLISM [None]
  - ANXIETY [None]
  - WOUND INFECTION [None]
